FAERS Safety Report 5742308-3 (Version None)
Quarter: 2008Q2

REPORT INFORMATION
  Report Type: 
  Country: None (occurrence: None)
  Receive Date: 20080514
  Receipt Date: 20080514
  Transmission Date: 20081010
  Serious: Yes (Other)
  Sender: FDA-Public Use
  Company Number: None

PATIENT
  Age: 16 Year
  Sex: Female
  Weight: 47.6277 kg

DRUGS (2)
  1. YASMIN [Suspect]
     Indication: ACNE
     Dosage: 1 PER DAY
     Dates: start: 20071201, end: 20080421
  2. YASMIN [Suspect]
     Indication: MENSTRUATION IRREGULAR
     Dosage: 1 PER DAY
     Dates: start: 20071201, end: 20080421

REACTIONS (4)
  - DIZZINESS [None]
  - NAUSEA [None]
  - PYREXIA [None]
  - VAGINAL LESION [None]
